FAERS Safety Report 8978286 (Version 3)
Quarter: 2013Q3

REPORT INFORMATION
  Report Type: Spontaneous
  Country: US (occurrence: US)
  Receive Date: 20121220
  Receipt Date: 20130806
  Transmission Date: 20140515
  Serious: No
  Sender: FDA-Public Use
  Company Number: US-009507513-1212USA006343

PATIENT
  Age: 22 Year
  Sex: Female
  Weight: 54.88 kg

DRUGS (1)
  1. IMPLANON [Suspect]
     Indication: CONTRACEPTION
     Dosage: 68 MG EVERY THREE YEARS
     Route: 059
     Dates: start: 20121212, end: 20121212

REACTIONS (3)
  - Device kink [Unknown]
  - Product quality issue [Unknown]
  - Medical device discomfort [Unknown]
